FAERS Safety Report 5161872-9 (Version None)
Quarter: 2006Q4

REPORT INFORMATION
  Report Type: 
  Country: None (occurrence: None)
  Receive Date: 20061130
  Receipt Date: 20061011
  Transmission Date: 20070319
  Serious: Yes (Other)
  Sender: FDA-Public Use
  Company Number: US-GLAXOSMITHKLINE-A0623398A

PATIENT
  Age: 32 Year
  Sex: Male
  Weight: 90 kg

DRUGS (6)
  1. WELLBUTRIN [Suspect]
     Indication: DEPRESSION
     Dosage: 300MG PER DAY
     Route: 048
     Dates: start: 20060823, end: 20060902
  2. HEROIN [Concomitant]
     Dates: start: 20030101
  3. METHADONE HCL [Concomitant]
     Indication: PROPHYLAXIS
     Dosage: 65MG PER DAY
     Route: 048
     Dates: start: 20060804
  4. ROBITUSSIN [Concomitant]
     Dates: start: 20060830, end: 20060902
  5. ACTIFED [Concomitant]
     Dates: start: 20060830, end: 20060902
  6. LEVAQUIN [Concomitant]
     Dosage: 2TAB PER DAY
     Route: 048
     Dates: start: 20060830, end: 20060902

REACTIONS (1)
  - CONVULSION [None]
